FAERS Safety Report 7642649-9 (Version None)
Quarter: 2011Q3

REPORT INFORMATION
  Report Type: 
  Country: None (occurrence: None)
  Receive Date: 20110728
  Receipt Date: 20110726
  Transmission Date: 20111222
  Serious: Yes (Hospitalization, Other)
  Sender: FDA-Public Use
  Company Number: US-PFIZER INC-2011087701

PATIENT
  Sex: Male

DRUGS (5)
  1. CLONAZEPAM [Concomitant]
     Indication: DEPRESSION
     Dosage: UNK
     Dates: start: 20070101, end: 20100101
  2. CHANTIX [Suspect]
     Indication: SMOKING CESSATION THERAPY
     Dosage: 0.5MG AND 1MG
     Route: 048
     Dates: start: 20090213, end: 20090406
  3. FLOVENT [Concomitant]
     Indication: RESPIRATORY DISORDER
     Dosage: UNK
     Dates: start: 20060101, end: 20100101
  4. MIRTAZAPINE [Concomitant]
     Indication: DEPRESSION
     Dosage: UNK
     Dates: start: 20060101
  5. SEROQUEL [Concomitant]
     Indication: DEPRESSION
     Dosage: 300MG AND 600MG
     Dates: start: 20060101

REACTIONS (3)
  - SUICIDAL IDEATION [None]
  - ANXIETY [None]
  - DEPRESSION [None]
